FAERS Safety Report 24534108 (Version 1)
Quarter: 2024Q4

REPORT INFORMATION
  Report Type: Spontaneous
  Country: US (occurrence: None)
  Receive Date: 20241021
  Receipt Date: 20241021
  Transmission Date: 20250114
  Serious: Yes (Hospitalization)
  Sender: Public
  Company Number: None

PATIENT
  Age: 67 Year
  Sex: Female
  Weight: 78.75 kg

DRUGS (6)
  1. REVLIMID [Suspect]
     Active Substance: LENALIDOMIDE
     Indication: Follicular lymphoma
     Dosage: OTHER FREQUENCY : 21 DAYS EVERY 28 D;?
     Route: 048
     Dates: start: 20241017
  2. RITUXIMAB [Suspect]
     Active Substance: RITUXIMAB
  3. cholecalciferol 1250mcg [Concomitant]
  4. calcium carbonate 600mg [Concomitant]
  5. VITAMINS [Concomitant]
     Active Substance: VITAMINS
  6. ASPIRIN [Concomitant]
     Active Substance: ASPIRIN

REACTIONS (10)
  - Headache [None]
  - Loss of consciousness [None]
  - Neck pain [None]
  - Burning sensation [None]
  - Syncope [None]
  - Feeling abnormal [None]
  - Mental impairment [None]
  - Dizziness [None]
  - Gait inability [None]
  - Urinary tract infection [None]

NARRATIVE: CASE EVENT DATE: 20241017
